FAERS Safety Report 9714141 (Version 1)
Quarter: 2013Q4

REPORT INFORMATION
  Report Type: Spontaneous
  Country: US (occurrence: US)
  Receive Date: 20131126
  Receipt Date: 20131126
  Transmission Date: 20140711
  Serious: No
  Sender: FDA-Public Use
  Company Number: US-GILEAD-2008-0019013

PATIENT
  Sex: Female
  Weight: 76.66 kg

DRUGS (12)
  1. LETAIRIS [Suspect]
     Indication: PULMONARY ARTERIAL HYPERTENSION
     Route: 048
  2. ALDACTONE [Concomitant]
  3. LOPRESSOR [Concomitant]
  4. LASIX [Concomitant]
  5. ALBUTEROL [Concomitant]
  6. COUMADIN [Concomitant]
  7. LANOXIN [Concomitant]
  8. POTASSIUM CHLORIDE [Concomitant]
  9. ADVAIR DISKUS [Concomitant]
  10. FERROUS SULF [Concomitant]
  11. KEPRA [Concomitant]
  12. PREVACID [Concomitant]

REACTIONS (1)
  - Local swelling [None]
